FAERS Safety Report 15317438 (Version 4)
Quarter: 2019Q2

REPORT INFORMATION
  Report Type: Spontaneous
  Country: US (occurrence: US)
  Receive Date: 20180824
  Receipt Date: 20190409
  Transmission Date: 20190711
  Serious: Yes (Hospitalization)
  Sender: FDA-Public Use
  Company Number: US-ASTRAZENECA-2018SF05561

PATIENT
  Age: 30679 Day
  Sex: Female
  Weight: 99.8 kg

DRUGS (1)
  1. TUDORZA [Suspect]
     Active Substance: ACLIDINIUM BROMIDE
     Indication: CHRONIC OBSTRUCTIVE PULMONARY DISEASE
     Route: 055

REACTIONS (7)
  - Device malfunction [Unknown]
  - Diverticulitis [Recovering/Resolving]
  - Cataract [Unknown]
  - Hypoacusis [Unknown]
  - Intentional product misuse [Unknown]
  - Drug dose omission by device [Not Recovered/Not Resolved]
  - Malaise [Not Recovered/Not Resolved]

NARRATIVE: CASE EVENT DATE: 20180808
